APPROVED DRUG PRODUCT: DESOXIMETASONE
Active Ingredient: DESOXIMETASONE
Strength: 0.25%
Dosage Form/Route: OINTMENT;TOPICAL
Application: A078657 | Product #001 | TE Code: AB
Applicant: FOUGERA PHARMACEUTICALS INC
Approved: Sep 28, 2012 | RLD: No | RS: No | Type: RX